FAERS Safety Report 9373537 (Version 1)
Quarter: 2013Q2

REPORT INFORMATION
  Report Type: Spontaneous
  Country: GB (occurrence: GB)
  Receive Date: 20130627
  Receipt Date: 20130627
  Transmission Date: 20140414
  Serious: Yes (Disabling, Other)
  Sender: FDA-Public Use
  Company Number: GB-MERCK-1306GBR010337

PATIENT
  Age: 65 Year
  Sex: Female
  Weight: 91 kg

DRUGS (3)
  1. SIMVASTATIN [Suspect]
     Dosage: UNK
     Route: 048
     Dates: start: 20130213, end: 20130313
  2. BENDROFLUMETHIAZIDE [Concomitant]
     Dosage: UNK
     Dates: start: 20130213, end: 20130313
  3. CLOPIDOGREL [Concomitant]
     Dosage: UNK
     Dates: start: 20130227, end: 20130327

REACTIONS (2)
  - Lethargy [Recovered/Resolved]
  - Myalgia [Recovered/Resolved]
